FAERS Safety Report 4843535-X (Version None)
Quarter: 2005Q4

REPORT INFORMATION
  Report Type: 
  Country: None (occurrence: None)
  Receive Date: 20051125
  Receipt Date: 20051115
  Transmission Date: 20060501
  Serious: Yes (Hospitalization)
  Sender: FDA-Public Use
  Company Number: HQWYE592117NOV05

PATIENT
  Age: 56 Year
  Sex: Female
  Weight: 95.34 kg

DRUGS (12)
  1. TYGACIL [Suspect]
     Indication: OSTEOMYELITIS
     Dosage: 100 MG LOAD, THEN 50 MG EVERY 12 HOURS, INTRAVENOUS
     Route: 042
     Dates: start: 20051107, end: 20051114
  2. AMITRIPTYLINE HCL [Concomitant]
  3. HEPARIN [Concomitant]
  4. ............... [Concomitant]
  5. SODIUM CHLORIDE BACTERIOSTATIC [Concomitant]
  6. PAROXETINE                    (PAROXETINE) [Concomitant]
  7. MICARDIS HCT                              (TELMISARTAN/HYDROCHLOROTHIA [Concomitant]
  8. PREDNISONE [Concomitant]
  9. OXYCODONE                    (OXYCODONE) [Concomitant]
  10. SYNTHROID [Concomitant]
  11. VANCOMYCIN [Concomitant]
  12. ROCEPHIN [Concomitant]

REACTIONS (1)
  - PANCREATITIS [None]
